FAERS Safety Report 9456813 (Version 1)
Quarter: 2013Q3

REPORT INFORMATION
  Report Type: Spontaneous
  Country: CA (occurrence: CA)
  Receive Date: 20130813
  Receipt Date: 20130813
  Transmission Date: 20140515
  Serious: Yes (Other)
  Sender: FDA-Public Use
  Company Number: CA-AMGEN-CANSP2013055587

PATIENT
  Age: 46 Year
  Sex: Female

DRUGS (2)
  1. ENBREL [Suspect]
     Indication: RHEUMATOID ARTHRITIS
     Dosage: 50 MG, UNK
     Route: 065
     Dates: start: 20130603
  2. VITAMINS /90003601/ [Concomitant]
     Dosage: UNK

REACTIONS (2)
  - Purulent discharge [Not Recovered/Not Resolved]
  - Thermal burn [Not Recovered/Not Resolved]
